FAERS Safety Report 4318550-5 (Version None)
Quarter: 2004Q1

REPORT INFORMATION
  Report Type: 
  Country: None (occurrence: None)
  Receive Date: 20040315
  Receipt Date: 20040305
  Transmission Date: 20041129
  Serious: Yes (Hospitalization)
  Sender: FDA-Public Use
  Company Number: 2004194579JP

PATIENT
  Age: 82 Year
  Sex: Male

DRUGS (11)
  1. CABERGOLINE [Suspect]
     Indication: PARKINSON'S DISEASE
     Dosage: 1 MG, QD, ORAL
     Route: 048
     Dates: start: 20030929, end: 20031224
  2. DEPAS (ETIZOLAM) [Concomitant]
  3. URSO [Concomitant]
  4. SYMMETREL [Concomitant]
  5. GASMOTIN [Concomitant]
  6. PURSENNID (SENNA LEAF) [Concomitant]
  7. MAGNESIUM OXIDE [Concomitant]
  8. STOGAR [Concomitant]
  9. MENESIT [Concomitant]
  10. MADOPAR (BENSERAZIDE HYDROCHLORIDE) [Concomitant]
  11. GASTER [Concomitant]

REACTIONS (2)
  - INTERSTITIAL LUNG DISEASE [None]
  - PNEUMOTHORAX [None]
